FAERS Safety Report 18049310 (Version 1)
Quarter: 2020Q3

REPORT INFORMATION
  Report Type: Spontaneous
  Country: CA (occurrence: CA)
  Receive Date: 20200721
  Receipt Date: 20200721
  Transmission Date: 20201103
  Serious: Yes (Hospitalization, Other)
  Sender: FDA-Public Use
  Company Number: CA-ACCORD-191603

PATIENT
  Sex: Female

DRUGS (18)
  1. IPRATROPIUM [Concomitant]
     Active Substance: IPRATROPIUM
     Dosage: NOT SPECIFIED
     Route: 065
  2. QUETIAPINE. [Suspect]
     Active Substance: QUETIAPINE
     Indication: PRODUCT USED FOR UNKNOWN INDICATION
     Route: 048
  3. ACETYLCYSTEINE. [Concomitant]
     Active Substance: ACETYLCYSTEINE
     Route: 048
  4. THEOPHYLLINE [Concomitant]
     Active Substance: THEOPHYLLINE ANHYDROUS
     Dosage: NOT SPECIFIED
     Route: 065
  5. VENTOLIN [Concomitant]
     Active Substance: ALBUTEROL SULFATE
     Dosage: NOT SPECIFIED
     Route: 065
  6. PREDNISONE. [Concomitant]
     Active Substance: PREDNISONE
     Dosage: NOT SPECIFIED
     Route: 048
  7. QUETIAPINE/QUETIAPINE FUMARATE [Concomitant]
     Active Substance: QUETIAPINE FUMARATE
     Route: 065
  8. ARNUITY ELLIPTA [Concomitant]
     Active Substance: FLUTICASONE FUROATE
     Route: 065
  9. OXYCODONE/OXYCODONE HYDROCHLORIDE/OXYCODONE PECTINATE/OXYCODONE TEREPHTHALATE [Concomitant]
     Active Substance: OXYCODONE
     Route: 065
  10. TYLENOL [Concomitant]
     Active Substance: ACETAMINOPHEN
     Dosage: NOT SPECIFIED
     Route: 065
  11. GLYCOPYRRONIUM BROMIDE/INDACATEROL MALEATE [Concomitant]
     Active Substance: GLYCOPYRROLATE\INDACATEROL MALEATE
     Route: 048
  12. GABAPENTIN. [Concomitant]
     Active Substance: GABAPENTIN
     Dosage: NOT SPECIFIED
     Route: 065
  13. MOMETASONE [Concomitant]
     Active Substance: MOMETASONE
     Route: 065
  14. QUINAPRIL. [Concomitant]
     Active Substance: QUINAPRIL
     Route: 065
  15. BETAMETHASONE. [Concomitant]
     Active Substance: BETAMETHASONE
     Route: 065
  16. LORAZEPAM. [Concomitant]
     Active Substance: LORAZEPAM
     Dosage: NOT SPECIFIED
     Route: 065
  17. OLODATEROL/TIOTROPIUM [Concomitant]
     Active Substance: OLODATEROL HYDROCHLORIDE\TIOTROPIUM BROMIDE MONOHYDRATE
     Route: 065
  18. RANITIDINE. [Concomitant]
     Active Substance: RANITIDINE
     Route: 048

REACTIONS (8)
  - Breathing-related sleep disorder [Not Recovered/Not Resolved]
  - Hypercapnia [Not Recovered/Not Resolved]
  - Hypoxia [Not Recovered/Not Resolved]
  - Somnolence [Not Recovered/Not Resolved]
  - Chronic obstructive pulmonary disease [Not Recovered/Not Resolved]
  - Wheezing [Not Recovered/Not Resolved]
  - Respiratory failure [Not Recovered/Not Resolved]
  - Inspiratory capacity decreased [Not Recovered/Not Resolved]
